FAERS Safety Report 7400734-0 (Version None)
Quarter: 2011Q2

REPORT INFORMATION
  Report Type: 
  Country: None (occurrence: None)
  Receive Date: 20110407
  Receipt Date: 20110126
  Transmission Date: 20111010
  Serious: Yes (Other)
  Sender: FDA-Public Use
  Company Number: A0909464A

PATIENT
  Age: 47 Year
  Sex: Female

DRUGS (8)
  1. CELEXA [Concomitant]
  2. ALEVE [Concomitant]
  3. IBUPROFEN [Concomitant]
  4. BENADRYL [Concomitant]
  5. ADVIL LIQUI-GELS [Concomitant]
  6. LAMICTAL XR [Suspect]
     Indication: CONVULSION
     Dosage: 200MG PER DAY
     Route: 048
     Dates: start: 20101201
  7. EXCEDRIN (MIGRAINE) [Concomitant]
  8. TRAZODONE HCL [Suspect]
     Indication: PRODUCT USED FOR UNKNOWN INDICATION
     Dosage: 100MG PER DAY
     Route: 048
     Dates: start: 20110328

REACTIONS (6)
  - PRURITUS [None]
  - HEADACHE [None]
  - THERMAL BURN [None]
  - LOCAL SWELLING [None]
  - CONVULSION [None]
  - TINNITUS [None]
